FAERS Safety Report 6902357-6 (Version None)
Quarter: 2010Q3

REPORT INFORMATION
  Report Type: 
  Country: None (occurrence: None)
  Receive Date: 20100803
  Receipt Date: 20080510
  Transmission Date: 20110219
  Serious: No
  Sender: FDA-Public Use
  Company Number: US-PFIZER INC-2008041889

PATIENT
  Sex: Female
  Weight: 108 kg

DRUGS (8)
  1. LYRICA [Suspect]
     Indication: FIBROMYALGIA
     Dates: start: 20080429
  2. METHOTREXATE [Concomitant]
  3. TRAMADOL HYDROCHLORIDE [Concomitant]
  4. METOPROLOL [Concomitant]
  5. SULFAMETHIZOLE TAB [Concomitant]
  6. LISINOPRIL [Concomitant]
  7. FOLIC ACID [Concomitant]
  8. VITAMIN D [Concomitant]

REACTIONS (3)
  - ASTHENIA [None]
  - EYELID FUNCTION DISORDER [None]
  - HEADACHE [None]
